FAERS Safety Report 24312405 (Version 5)
Quarter: 2024Q4

REPORT INFORMATION
  Report Type: Report from Study
  Country: BE (occurrence: BE)
  Receive Date: 20240912
  Receipt Date: 20241030
  Transmission Date: 20250115
  Serious: Yes (Hospitalization, Other)
  Sender: GLAXOSMITHKLINE
  Company Number: None

PATIENT

DRUGS (39)
  1. EPOPROSTENOL SODIUM [Suspect]
     Active Substance: EPOPROSTENOL SODIUM
     Indication: Pulmonary arterial hypertension
     Dosage: 2 NG/KG (1 MIN)
     Route: 042
     Dates: start: 20211105, end: 20211108
  2. EPOPROSTENOL SODIUM [Suspect]
     Active Substance: EPOPROSTENOL SODIUM
     Dosage: 5 NG/KG (1MIN)
     Route: 042
     Dates: start: 20211108, end: 20211112
  3. EPOPROSTENOL SODIUM [Suspect]
     Active Substance: EPOPROSTENOL SODIUM
     Dosage: 7 NG/KG (1 MIN)
     Route: 042
     Dates: start: 20211112, end: 20211115
  4. EPOPROSTENOL SODIUM [Suspect]
     Active Substance: EPOPROSTENOL SODIUM
     Dosage: 9 NG/KG (1 MIN)
     Route: 042
     Dates: start: 20211115, end: 20211116
  5. EPOPROSTENOL SODIUM [Suspect]
     Active Substance: EPOPROSTENOL SODIUM
     Dosage: 10 NG/KG (1 MIN)
     Route: 042
     Dates: start: 20211116, end: 20211123
  6. EPOPROSTENOL SODIUM [Suspect]
     Active Substance: EPOPROSTENOL SODIUM
     Dosage: 11 NG/KG (1 MIN)
     Route: 042
     Dates: start: 20211123, end: 20211130
  7. EPOPROSTENOL SODIUM [Suspect]
     Active Substance: EPOPROSTENOL SODIUM
     Dosage: 12 NG/KG (1 MIN)
     Route: 042
     Dates: start: 20211130, end: 20211228
  8. EPOPROSTENOL SODIUM [Suspect]
     Active Substance: EPOPROSTENOL SODIUM
     Dosage: 15 NG/KG (1 MIN)
     Route: 042
     Dates: start: 20211228, end: 20220105
  9. EPOPROSTENOL SODIUM [Suspect]
     Active Substance: EPOPROSTENOL SODIUM
     Dosage: 16 NG/KG (1 MIN)
     Route: 042
     Dates: start: 20220105, end: 20220117
  10. EPOPROSTENOL SODIUM [Suspect]
     Active Substance: EPOPROSTENOL SODIUM
     Dosage: 17 NG/KG (1 MIN)
     Route: 042
     Dates: start: 20220118, end: 20220204
  11. EPOPROSTENOL SODIUM [Suspect]
     Active Substance: EPOPROSTENOL SODIUM
     Dosage: 18 NG/KG (1 MIN)
     Route: 042
     Dates: start: 20220204, end: 20220810
  12. EPOPROSTENOL SODIUM [Suspect]
     Active Substance: EPOPROSTENOL SODIUM
     Dosage: 15 NG/KG (1 MIN)
     Route: 042
     Dates: start: 20220810, end: 20220816
  13. EPOPROSTENOL SODIUM [Suspect]
     Active Substance: EPOPROSTENOL SODIUM
     Dosage: 12 NG/KG (1 MIN)
     Route: 042
     Dates: start: 20220816, end: 20220823
  14. EPOPROSTENOL SODIUM [Suspect]
     Active Substance: EPOPROSTENOL SODIUM
     Dosage: 9 NG/KG (1 MIN)
     Route: 042
     Dates: start: 20220823, end: 20220830
  15. EPOPROSTENOL SODIUM [Suspect]
     Active Substance: EPOPROSTENOL SODIUM
     Dosage: 6 NG/KG (1 MIN)
     Route: 042
     Dates: start: 20220830, end: 20220906
  16. EPOPROSTENOL SODIUM [Suspect]
     Active Substance: EPOPROSTENOL SODIUM
     Dosage: 3 NG/KG (1 MIN)
     Route: 042
     Dates: start: 20220906, end: 20220913
  17. EPOPROSTENOL SODIUM [Suspect]
     Active Substance: EPOPROSTENOL SODIUM
     Dosage: 2 NG/KG (1 MIN)
     Route: 042
     Dates: start: 20220913, end: 20220919
  18. EPOPROSTENOL SODIUM [Suspect]
     Active Substance: EPOPROSTENOL SODIUM
     Dosage: 1 NG/KG (1 MIN)
     Route: 042
     Dates: start: 20220919, end: 20220927
  19. SELEXIPAG [Suspect]
     Active Substance: SELEXIPAG
     Indication: Pulmonary arterial hypertension
     Dosage: 400 ?G
     Route: 048
     Dates: start: 20220810, end: 20220816
  20. SELEXIPAG [Suspect]
     Active Substance: SELEXIPAG
     Dosage: 800 ?G
     Route: 048
     Dates: start: 20220816, end: 20220822
  21. SELEXIPAG [Suspect]
     Active Substance: SELEXIPAG
     Dosage: 1600 ?G
     Route: 048
     Dates: start: 20220822, end: 20220829
  22. SELEXIPAG [Suspect]
     Active Substance: SELEXIPAG
     Dosage: 2000 ?G
     Route: 048
     Dates: start: 20220829, end: 20220906
  23. SELEXIPAG [Suspect]
     Active Substance: SELEXIPAG
     Dosage: 2400 ?G
     Route: 048
     Dates: start: 20220906, end: 20220913
  24. SELEXIPAG [Suspect]
     Active Substance: SELEXIPAG
     Dosage: 2800 ?G
     Route: 048
     Dates: start: 20220913, end: 20220919
  25. SELEXIPAG [Suspect]
     Active Substance: SELEXIPAG
     Dosage: 3200 ?G
     Route: 048
     Dates: start: 20220927
  26. MACITENTAN [Suspect]
     Active Substance: MACITENTAN
     Indication: Pulmonary arterial hypertension
     Dosage: 10 MG, QD
     Route: 048
     Dates: start: 20211021
  27. ADEMPAS [Concomitant]
     Active Substance: RIOCIGUAT
     Indication: Pulmonary arterial hypertension
     Dosage: TOTAL DAILY DOSE 3
     Route: 048
     Dates: start: 20221020, end: 20221102
  28. ADEMPAS [Concomitant]
     Active Substance: RIOCIGUAT
     Dosage: TOTAL DAILY DOSE 4.5
     Route: 048
     Dates: start: 20221102, end: 20221116
  29. ADEMPAS [Concomitant]
     Active Substance: RIOCIGUAT
     Dosage: TOTAL DAILY DOSE 6
     Route: 048
     Dates: start: 20221116, end: 20221129
  30. ADEMPAS [Concomitant]
     Active Substance: RIOCIGUAT
     Dosage: TOTAL DAILY DOSE 6
     Route: 048
     Dates: start: 20221129, end: 20221209
  31. ADEMPAS [Concomitant]
     Active Substance: RIOCIGUAT
     Dosage: TOTAL DAILY DOSE 6
     Route: 048
     Dates: start: 20221209, end: 20230109
  32. ADEMPAS [Concomitant]
     Active Substance: RIOCIGUAT
     Dosage: TOTAL DAILY DOSE 7.5
     Route: 048
     Dates: start: 20230109, end: 20230113
  33. ADEMPAS [Concomitant]
     Active Substance: RIOCIGUAT
     Dosage: TOTAL DAILY DOSE 6
     Route: 048
     Dates: start: 20230113
  34. ASPIRIN [Concomitant]
     Active Substance: ASPIRIN
     Indication: Product used for unknown indication
     Dosage: UNK
     Route: 065
  35. ALDACTONE [Concomitant]
     Active Substance: SPIRONOLACTONE
     Indication: Product used for unknown indication
     Dosage: UNK
     Route: 065
  36. CLOPIDOGREL [Concomitant]
     Active Substance: CLOPIDOGREL BISULFATE
     Indication: Product used for unknown indication
     Dosage: UNK
     Route: 065
  37. BUMETANIDE [Concomitant]
     Active Substance: BUMETANIDE
     Indication: Product used for unknown indication
     Dosage: UNK
     Route: 065
  38. Pantomed [Concomitant]
     Indication: Product used for unknown indication
     Dosage: UNK
     Route: 065
  39. ADCIRCA [Concomitant]
     Active Substance: TADALAFIL
     Indication: Product used for unknown indication
     Dosage: 40 MG
     Route: 048
     Dates: start: 20211026, end: 20221018

REACTIONS (14)
  - Diarrhoea [Unknown]
  - Haematochezia [Recovered/Resolved with Sequelae]
  - Alcoholism [Not Recovered/Not Resolved]
  - Intestinal polyp [Recovered/Resolved]
  - Hyponatraemia [Not Recovered/Not Resolved]
  - Fall [Not Recovered/Not Resolved]
  - Anaemia [Recovered/Resolved]
  - Malaise [Unknown]
  - Systolic dysfunction [Recovered/Resolved]
  - Malnutrition [Recovered/Resolved]
  - Malaise [Recovered/Resolved]
  - Hypotension [Recovering/Resolving]
  - Hand fracture [Recovered/Resolved with Sequelae]
  - Injury [Recovered/Resolved with Sequelae]

NARRATIVE: CASE EVENT DATE: 20240202
